FAERS Safety Report 6025212-5 (Version None)
Quarter: 2008Q4

REPORT INFORMATION
  Report Type: 
  Country: None (occurrence: None)
  Receive Date: 20081231
  Receipt Date: 20081229
  Transmission Date: 20090506
  Serious: Yes (Other)
  Sender: FDA-Public Use
  Company Number: US-ASTRAZENECA-2008UW28822

PATIENT
  Age: 80 Year
  Sex: Female
  Weight: 55.8 kg

DRUGS (18)
  1. CRESTOR [Suspect]
     Indication: BLOOD CHOLESTEROL INCREASED
     Route: 048
     Dates: start: 20060101
  2. GEMFIBROZIL [Concomitant]
  3. WARFARIN [Concomitant]
     Dosage: 3.5 MG
  4. SYNTHROID [Concomitant]
     Dosage: 0.75
  5. NORVASC [Concomitant]
     Dosage: 5 MGS
  6. DIOVAN HCT [Concomitant]
     Dosage: 12.5 MGS
  7. LIMBITROL [Concomitant]
     Dosage: 10 MGS
  8. ASPIRIN [Concomitant]
     Dosage: 325 MGS
  9. TRENTOL [Concomitant]
     Dosage: 3 DAILY
  10. POTASSIUM CHLORIDE [Concomitant]
  11. MAGNESIUM SULFATE [Concomitant]
     Dosage: TWICE DAILY
  12. LASIX [Concomitant]
     Dosage: ONE EVERY THIRD DAY
  13. FOSAMAX [Concomitant]
     Dosage: WEEKLY
  14. VITAMIN E [Concomitant]
  15. VITAMIN B [Concomitant]
  16. ASCORBIC ACID [Concomitant]
  17. VITAMIN B-12 [Concomitant]
  18. OYST-CAL [Concomitant]

REACTIONS (1)
  - RENAL IMPAIRMENT [None]
